FAERS Safety Report 9736663 (Version 2)
Quarter: 2015Q3

REPORT INFORMATION
  Report Type: Spontaneous
  Country: US (occurrence: US)
  Receive Date: 20131206
  Receipt Date: 20150804
  Transmission Date: 20151125
  Serious: No
  Sender: FDA-Public Use
  Company Number: US-GILEAD-2009-0023216

PATIENT
  Age: 74 Year
  Sex: Male
  Weight: 89.36 kg

DRUGS (16)
  1. METOPROLOL [Concomitant]
     Active Substance: METOPROLOL
  2. FUROSEMIDE. [Concomitant]
     Active Substance: FUROSEMIDE
  3. OXYGEN. [Concomitant]
     Active Substance: OXYGEN
  4. ASPIRIN. [Concomitant]
     Active Substance: ASPIRIN
  5. LETAIRIS [Suspect]
     Active Substance: AMBRISENTAN
     Indication: PULMONARY ARTERIAL HYPERTENSION
     Route: 048
     Dates: start: 20090701
  6. CRESTOR [Concomitant]
     Active Substance: ROSUVASTATIN CALCIUM
  7. ISOSORBIDE DN [Concomitant]
  8. TEKTURNA [Concomitant]
     Active Substance: ALISKIREN HEMIFUMARATE
  9. METFORMIN HCL ER [Concomitant]
     Active Substance: METFORMIN HYDROCHLORIDE
  10. LANTUS [Concomitant]
     Active Substance: INSULIN GLARGINE
  11. GLYBURIDE. [Concomitant]
     Active Substance: GLYBURIDE
  12. COUMADIN [Concomitant]
     Active Substance: WARFARIN SODIUM
  13. DIGOXIN. [Concomitant]
     Active Substance: DIGOXIN
  14. CATAPRES-TTS [Concomitant]
     Active Substance: CLONIDINE
  15. LISINOPRIL. [Concomitant]
     Active Substance: LISINOPRIL
  16. PROZAC [Concomitant]
     Active Substance: FLUOXETINE HYDROCHLORIDE

REACTIONS (2)
  - Rash [Unknown]
  - Local swelling [Unknown]
